FAERS Safety Report 23542633 (Version 1)
Quarter: 2024Q1

REPORT INFORMATION
  Report Type: Spontaneous
  Country: US (occurrence: US)
  Receive Date: 20240220
  Receipt Date: 20240220
  Transmission Date: 20240410
  Serious: Yes (Other)
  Sender: FDA-Public Use
  Company Number: US-ALKEM LABORATORIES LIMITED-US-ALKEM-2023-00188

PATIENT
  Age: 10 Year
  Sex: Male

DRUGS (1)
  1. TRIAMCINOLONE ACETONIDE [Suspect]
     Active Substance: TRIAMCINOLONE ACETONIDE
     Indication: Hypertrophic scar
     Dosage: 80 MILLIGRAM (CUMULATIVE DOSE SERIES OF INJECTIONS OF TRIAMCINOLONE) INJECTION
     Route: 026

REACTIONS (1)
  - Cushing^s syndrome [Recovered/Resolved]
